APPROVED DRUG PRODUCT: ORFADIN
Active Ingredient: NITISINONE
Strength: 4MG/ML
Dosage Form/Route: SUSPENSION;ORAL
Application: N206356 | Product #001
Applicant: SWEDISH ORPHAN BIOVITRUM AB PUBL
Approved: Apr 22, 2016 | RLD: Yes | RS: Yes | Type: RX

PATENTS:
Patent 9301932 | Expires: Feb 28, 2033